FAERS Safety Report 25509013 (Version 1)
Quarter: 2025Q3

REPORT INFORMATION
  Report Type: Spontaneous
  Country: GB (occurrence: GB)
  Receive Date: 20250703
  Receipt Date: 20250703
  Transmission Date: 20251021
  Serious: Yes (Other)
  Sender: RANBAXY
  Company Number: GB-SUN PHARMACEUTICAL INDUSTRIES INC-2025R1-515162

PATIENT

DRUGS (3)
  1. DEXAMETHASONE [Suspect]
     Active Substance: DEXAMETHASONE
     Indication: Sjogren^s syndrome
     Dosage: 4 MILLIGRAM, QD
     Route: 064
     Dates: start: 202210
  2. HYDROXYCHLOROQUINE [Suspect]
     Active Substance: HYDROXYCHLOROQUINE
     Indication: Sjogren^s syndrome
     Dosage: 400 MILLIGRAM, QD
     Route: 064
     Dates: start: 202210
  3. ALBUTEROL [Suspect]
     Active Substance: ALBUTEROL
     Indication: Heart block congenital
     Route: 064
     Dates: start: 202210

REACTIONS (3)
  - Foetal exposure during pregnancy [Unknown]
  - Premature baby [Unknown]
  - Condition aggravated [Unknown]
